FAERS Safety Report 10252485 (Version 1)
Quarter: 2014Q2

REPORT INFORMATION
  Report Type: Spontaneous
  Country: US (occurrence: US)
  Receive Date: 20140623
  Receipt Date: 20140623
  Transmission Date: 20141212
  Serious: Yes (Hospitalization, Other)
  Sender: FDA-Public Use
  Company Number: US-PFIZER INC-2014171855

PATIENT
  Age: 68 Year
  Sex: Female
  Weight: 92.06 kg

DRUGS (2)
  1. LYRICA [Suspect]
     Indication: FIBROMYALGIA
     Dosage: 50 MG, 2X/DAY
  2. MORPHINE [Concomitant]
     Indication: BACK PAIN
     Dosage: 15 MG, UNK

REACTIONS (1)
  - Pneumonia [Recovering/Resolving]
